FAERS Safety Report 6890123-X (Version None)
Quarter: 2010Q3

REPORT INFORMATION
  Report Type: 
  Country: None (occurrence: None)
  Receive Date: 20100730
  Receipt Date: 20080806
  Transmission Date: 20110219
  Serious: No
  Sender: FDA-Public Use
  Company Number: US-PFIZER INC-2008066189

PATIENT
  Sex: Male

DRUGS (4)
  1. LIPITOR [Suspect]
     Dates: end: 20080101
  2. ASCORBIC ACID [Concomitant]
  3. NEXIUM [Concomitant]
  4. ACETYLSALICYLIC ACID SRT [Concomitant]

REACTIONS (4)
  - BLOOD CREATINE PHOSPHOKINASE INCREASED [None]
  - GAIT DISTURBANCE [None]
  - HEADACHE [None]
  - MYALGIA [None]
